FAERS Safety Report 23769103 (Version 1)
Quarter: 2024Q2

REPORT INFORMATION
  Report Type: Spontaneous
  Country: US (occurrence: US)
  Receive Date: 20240422
  Receipt Date: 20240422
  Transmission Date: 20240716
  Serious: No
  Sender: FDA-Public Use
  Company Number: US-BAYER-2024A058907

PATIENT
  Age: 4 Year
  Sex: Female

DRUGS (2)
  1. CLARITIN [Suspect]
     Active Substance: LORATADINE
     Indication: Hypersensitivity
     Dosage: 1 DF, QD
     Route: 048
     Dates: start: 20240415, end: 20240417
  2. CLARITIN [Suspect]
     Active Substance: LORATADINE
     Indication: Nasopharyngitis
     Dosage: 8 DF, ONCE
     Route: 048
     Dates: start: 20240417, end: 20240417

REACTIONS (2)
  - Accidental exposure to product by child [Recovered/Resolved with Sequelae]
  - Accidental overdose [Recovered/Resolved with Sequelae]

NARRATIVE: CASE EVENT DATE: 20240417
